FAERS Safety Report 4294477-2 (Version None)
Quarter: 2004Q1

REPORT INFORMATION
  Report Type: 
  Country: None (occurrence: None)
  Receive Date: 20040211
  Receipt Date: 20040126
  Transmission Date: 20041129
  Serious: Yes (Hospitalization)
  Sender: FDA-Public Use
  Company Number: 204377

PATIENT
  Age: 56 Year
  Sex: Male
  Weight: 100 kg

DRUGS (5)
  1. MABTHERA(RITUXIMAB) CONC FOR SOLUTION FOR INFUSION [Suspect]
     Indication: NON-HODGKIN'S LYMPHOMA
     Dosage: INTRAVENOUS
     Route: 042
     Dates: start: 20030301, end: 20031016
  2. CYCLOPHOSPHAMIDE [Concomitant]
  3. ADRIBLASTIN (DOXORUBICIN HYDROCHLORIDE) [Concomitant]
  4. VINCRISTINE [Concomitant]
  5. PREDNISONE [Concomitant]

REACTIONS (11)
  - CARDIOMEGALY [None]
  - CARDIOPULMONARY FAILURE [None]
  - CARDIOTOXICITY [None]
  - CONGESTIVE CARDIOMYOPATHY [None]
  - DRUG INEFFECTIVE [None]
  - HEART RATE INCREASED [None]
  - MITRAL VALVE INCOMPETENCE [None]
  - NOCTURIA [None]
  - PALLOR [None]
  - PERICARDIAL EFFUSION [None]
  - PLEURAL EFFUSION [None]
